FAERS Safety Report 8838518 (Version 2)
Quarter: 2013Q3

REPORT INFORMATION
  Report Type: Spontaneous
  Country: US (occurrence: US)
  Receive Date: 20121012
  Receipt Date: 20130717
  Transmission Date: 20140515
  Serious: No
  Sender: FDA-Public Use
  Company Number: US-PFIZER INC-2012253686

PATIENT
  Age: 53 Year
  Sex: Female
  Weight: 103 kg

DRUGS (4)
  1. CORTEF [Suspect]
     Indication: ADRENAL INSUFFICIENCY
     Dosage: 30 MG, 1X/DAY
     Route: 048
     Dates: start: 201103
  2. PROGRAF [Concomitant]
     Indication: IMMUNOSUPPRESSANT DRUG THERAPY
     Dosage: UNK
  3. CELLCEPT [Concomitant]
     Indication: IMMUNOSUPPRESSANT DRUG THERAPY
     Dosage: UNK
  4. OMEPRAZOLE [Concomitant]
     Indication: GASTROOESOPHAGEAL REFLUX DISEASE
     Dosage: UNK

REACTIONS (4)
  - Malaise [Recovered/Resolved]
  - Stress [Recovered/Resolved]
  - Dyspnoea [Recovered/Resolved]
  - Somnolence [Unknown]
